FAERS Safety Report 22623849 (Version 1)
Quarter: 2023Q2

REPORT INFORMATION
  Report Type: Spontaneous
  Country: FR (occurrence: FR)
  Receive Date: 20230621
  Receipt Date: 20230621
  Transmission Date: 20230722
  Serious: Yes (Life-Threatening, Hospitalization, Other)
  Sender: FDA-Public Use
  Company Number: FR-MLMSERVICE-20230605-4327301-1

PATIENT
  Age: 80 Year
  Sex: Female

DRUGS (1)
  1. PACLITAXEL [Suspect]
     Active Substance: PACLITAXEL
     Indication: Chemotherapy
     Dates: end: 2022

REACTIONS (8)
  - Gastritis bacterial [Recovering/Resolving]
  - Portal venous gas [Recovering/Resolving]
  - Clostridial infection [Recovering/Resolving]
  - Gastric pneumatosis [Recovering/Resolving]
  - Pneumoperitoneum [Recovering/Resolving]
  - Lactic acidosis [Recovering/Resolving]
  - Haemodynamic instability [Recovering/Resolving]
  - Gastrointestinal mucosal necrosis [Recovering/Resolving]

NARRATIVE: CASE EVENT DATE: 20220101
